FAERS Safety Report 4339595-5 (Version None)
Quarter: 2004Q1

REPORT INFORMATION
  Report Type: 
  Country: None (occurrence: None)
  Receive Date: 20040329
  Receipt Date: 20040223
  Transmission Date: 20041129
  Serious: No
  Sender: FDA-Public Use
  Company Number: 04P-163-0251075-00

PATIENT
  Age: 73 Year
  Sex: Female
  Weight: 51.2565 kg

DRUGS (18)
  1. HUMIRA [Suspect]
     Indication: RHEUMATOID ARTHRITIS
     Dosage: 40 MG 1 IN 2 WK, SUBCUTANEOUS
     Route: 058
     Dates: start: 20030519
  2. ISOSORBIDE MONONITRATE [Concomitant]
  3. FUROSEMIDE [Concomitant]
  4. LOSARTAN POTASSIUM [Concomitant]
  5. METOPROLOL TARTRATE [Concomitant]
  6. ASPIRIN [Concomitant]
  7. RANITIDINE HYDROCHLORIDE [Concomitant]
  8. DIGOXIN [Concomitant]
  9. ATORVASTATIN [Concomitant]
  10. LEVOTHYROXINE SODIUM [Concomitant]
  11. SPIRONOLACTONE [Concomitant]
  12. POTASSIUM CHLORIDE [Concomitant]
  13. ALBUTEROL SULFATE [Concomitant]
  14. SALMETEROL XINAFOATE [Concomitant]
  15. CARISOPRODOL [Concomitant]
  16. DIAZEPAM [Concomitant]
  17. DARVOCET [Concomitant]
  18. AZATHIOPRINE [Concomitant]

REACTIONS (2)
  - STOMACH DISCOMFORT [None]
  - WEIGHT DECREASED [None]
